FAERS Safety Report 22223199 (Version 2)
Quarter: 2023Q2

REPORT INFORMATION
  Report Type: Report from Study
  Country: JP (occurrence: JP)
  Receive Date: 20230418
  Receipt Date: 20230627
  Transmission Date: 20230722
  Serious: No
  Sender: FDA-Public Use
  Company Number: JP-GILEAD-2020-0458206

PATIENT
  Age: 29 Year
  Sex: Male
  Weight: 69 kg

DRUGS (16)
  1. EMTRICITABINE\TENOFOVIR [Suspect]
     Active Substance: EMTRICITABINE\TENOFOVIR
     Indication: HIV infection
     Dosage: 1 DOSAGE FORM, QD
     Route: 048
     Dates: start: 20190302, end: 20201020
  2. BICTEGRAVIR\EMTRICITABINE\TENOFOVIR ALAFENAMIDE [Suspect]
     Active Substance: BICTEGRAVIR\EMTRICITABINE\TENOFOVIR ALAFENAMIDE
     Indication: HIV infection
     Dosage: 1 DOSAGE FORM, QD
     Route: 048
     Dates: start: 20201021
  3. TIVICAY [Suspect]
     Active Substance: DOLUTEGRAVIR SODIUM
     Indication: HIV infection
     Dosage: 1 DOSAGE FORM, QD
     Route: 065
     Dates: start: 20190302, end: 20201020
  4. RUPAFIN [Concomitant]
     Active Substance: RUPATADINE FUMARATE
     Dosage: UNK
     Dates: start: 20190302, end: 20191110
  5. LOCOID [Concomitant]
     Active Substance: HYDROCORTISONE BUTYRATE
     Dosage: UNK
     Dates: start: 20190302, end: 20210709
  6. BETAMETHASONE DIPROPIONATE [Concomitant]
     Active Substance: BETAMETHASONE DIPROPIONATE
     Dosage: UNK
     Dates: start: 20190302
  7. XYZAL [Concomitant]
     Active Substance: LEVOCETIRIZINE DIHYDROCHLORIDE
     Dosage: UNK
     Dates: end: 20220303
  8. GLYCOSAMINOGLYCANS [Concomitant]
     Active Substance: GLYCOSAMINOGLYCANS
     Dosage: UNK
     Dates: start: 20190508, end: 20211011
  9. GLYCOSAMINOGLYCANS [Concomitant]
     Active Substance: GLYCOSAMINOGLYCANS
     Dosage: UNK
     Dates: start: 20190508, end: 20211011
  10. THEOPHYLLINE [Concomitant]
     Active Substance: THEOPHYLLINE
     Dosage: UNK
     Dates: start: 20190601, end: 20190701
  11. SINGULAIR [Concomitant]
     Active Substance: MONTELUKAST SODIUM
     Dosage: UNK
     Dates: start: 20190601, end: 20190701
  12. FLUTICASONE FUROATE\VILANTEROL TRIFENATATE [Concomitant]
     Active Substance: FLUTICASONE FUROATE\VILANTEROL TRIFENATATE
     Dosage: UNK
     Dates: start: 20190601, end: 20190901
  13. CONCERTA [Concomitant]
     Active Substance: METHYLPHENIDATE HYDROCHLORIDE
     Dosage: UNK
  14. SERTRALINE [Concomitant]
     Active Substance: SERTRALINE HYDROCHLORIDE
     Dosage: UNK
  15. GLYCOSAMINOGLYCANS [Concomitant]
     Active Substance: GLYCOSAMINOGLYCANS
     Dosage: UNK
     Dates: end: 20210511
  16. ALLELOCK [Concomitant]
     Active Substance: OLOPATADINE HYDROCHLORIDE
     Dosage: UNK
     Dates: start: 20211228

REACTIONS (10)
  - Sleep disorder [Recovering/Resolving]
  - Impetigo [Recovering/Resolving]
  - Nausea [Recovering/Resolving]
  - Impetigo [Recovering/Resolving]
  - Anal abscess [Recovered/Resolved]
  - Anogenital warts [Recovering/Resolving]
  - Eczema herpeticum [Recovering/Resolving]
  - Oral candidiasis [Recovering/Resolving]
  - Anogenital warts [Recovering/Resolving]
  - Weight increased [Not Recovered/Not Resolved]

NARRATIVE: CASE EVENT DATE: 20190305
